FAERS Safety Report 6165758-2 (Version None)
Quarter: 2009Q2

REPORT INFORMATION
  Report Type: 
  Country: None (occurrence: None)
  Receive Date: 20090423
  Receipt Date: 20090414
  Transmission Date: 20091009
  Serious: Yes (Death)
  Sender: FDA-Public Use
  Company Number: US-BAXTER-2008BH012490

PATIENT
  Age: 91 Year
  Sex: Male

DRUGS (3)
  1. HEPARIN SODIUM INJECTION [Suspect]
     Indication: GALLBLADDER OPERATION
     Route: 065
     Dates: start: 20080128
  2. BLOOD PRESSURE MEDICATION [Concomitant]
     Indication: HYPERTENSION
     Route: 065
  3. TOPROL-XL [Concomitant]
     Indication: HYPERTENSION
     Route: 065

REACTIONS (7)
  - DECREASED APPETITE [None]
  - DEMENTIA [None]
  - MALAISE [None]
  - NAUSEA [None]
  - PALLOR [None]
  - SWELLING FACE [None]
  - VOMITING [None]
